FAERS Safety Report 8771143 (Version 1)
Quarter: 2012Q4

REPORT INFORMATION
  Report Type: Report from Study
  Country: TR (occurrence: TR)
  Receive Date: 20120906
  Receipt Date: 20120906
  Transmission Date: 20130627
  Serious: Yes (Hospitalization)
  Sender: FDA-Public Use
  Company Number: TR-ROCHE-1113313

PATIENT
  Age: 79 Year
  Sex: Male

DRUGS (1)
  1. XELODA [Suspect]
     Indication: GASTRIC CANCER
     Dosage: 3+3
     Route: 048
     Dates: start: 201206, end: 201208

REACTIONS (2)
  - Peripheral vascular disorder [Not Recovered/Not Resolved]
  - Cachexia [Not Recovered/Not Resolved]
